FAERS Safety Report 5468882-2 (Version None)
Quarter: 2007Q3

REPORT INFORMATION
  Report Type: 
  Country: None (occurrence: None)
  Receive Date: 20070926
  Receipt Date: 20070912
  Transmission Date: 20080115
  Serious: Yes (Hospitalization)
  Sender: FDA-Public Use
  Company Number: GB-GENENTECH-247922

PATIENT
  Sex: Female
  Weight: 96.372 kg

DRUGS (2)
  1. BEVACIZUMAB [Suspect]
     Indication: COLON CANCER
     Dosage: 730 MG, Q3W
     Route: 042
     Dates: start: 20070509, end: 20070824
  2. CAPECITABINE [Suspect]
     Indication: COLON CANCER
     Dosage: 1250 MG/M2, BID
     Route: 048
     Dates: start: 20070509

REACTIONS (2)
  - TEMPORAL ARTERITIS [None]
  - TRANSIENT ISCHAEMIC ATTACK [None]
